FAERS Safety Report 10930461 (Version 2)
Quarter: 2015Q1

REPORT INFORMATION
  Report Type: Spontaneous
  Country: US (occurrence: US)
  Receive Date: 20150319
  Receipt Date: 20150323
  Transmission Date: 20150721
  Serious: No
  Sender: FDA-Public Use
  Company Number: US-BAYER-2015-048400

PATIENT
  Age: 34 Year
  Sex: Male
  Weight: 159 kg

DRUGS (2)
  1. ALEVE [Suspect]
     Active Substance: NAPROXEN SODIUM
     Indication: PAIN IN EXTREMITY
     Dosage: 6 DF, QD
     Route: 048
     Dates: start: 2006
  2. ALEVE [Suspect]
     Active Substance: NAPROXEN SODIUM
     Indication: ARTHRALGIA

REACTIONS (2)
  - Extra dose administered [Unknown]
  - Off label use [None]

NARRATIVE: CASE EVENT DATE: 2006
